FAERS Safety Report 19268330 (Version 1)
Quarter: 2021Q2

REPORT INFORMATION
  Report Type: Spontaneous
  Country: PL (occurrence: PL)
  Receive Date: 20210518
  Receipt Date: 20210518
  Transmission Date: 20210717
  Serious: Yes (Other)
  Sender: FDA-Public Use
  Company Number: PL-PFIZER INC-2021490961

PATIENT
  Age: 58 Year
  Sex: Male
  Weight: 101 kg

DRUGS (2)
  1. SUTENT [Suspect]
     Active Substance: SUNITINIB MALATE
     Indication: RENAL CANCER
     Dosage: 50 MG, COURSE 1?4
     Route: 048
  2. SUTENT [Suspect]
     Active Substance: SUNITINIB MALATE
     Dosage: 37.5 MG, COURSE 5 ? 8
     Route: 048

REACTIONS (18)
  - Dyspepsia [Unknown]
  - Alanine aminotransferase increased [Unknown]
  - Anaemia [Unknown]
  - Chronic kidney disease [Unknown]
  - Abdominal pain [Unknown]
  - Palmar-plantar erythrodysaesthesia syndrome [Unknown]
  - Asthenia [Unknown]
  - Blood pressure increased [Unknown]
  - Diarrhoea [Unknown]
  - Muscle spasms [Unknown]
  - Hyperglycaemia [Unknown]
  - Blood thyroid stimulating hormone increased [Unknown]
  - Pain [Unknown]
  - Tinnitus [Unknown]
  - Flatulence [Unknown]
  - Back pain [Unknown]
  - Headache [Unknown]
  - Fatigue [Unknown]
